FAERS Safety Report 8833392 (Version 2)
Quarter: 2012Q4

REPORT INFORMATION
  Report Type: 
  Country: FR (occurrence: FR)
  Receive Date: 20121010
  Receipt Date: 20121016
  Transmission Date: 20130627
  Serious: Yes (Hospitalization, Other)
  Sender: FDA-Public Use
  Company Number: FR-PFIZER INC-2012246917

PATIENT
  Age: 50 Year
  Sex: Female

DRUGS (7)
  1. ALDACTONE [Suspect]
     Dosage: 75 mg, 1x/day
     Route: 048
     Dates: end: 20120822
  2. ALTEIS [Interacting]
     Dosage: 20 mg, daily
     Route: 048
  3. ESIDREX [Interacting]
     Dosage: 25 mg, daily
     Route: 048
  4. PRAVASTATIN [Concomitant]
     Dosage: UNK
     Route: 048
  5. PLAVIX [Concomitant]
     Dosage: UNK
     Route: 048
  6. LOXEN [Concomitant]
     Dosage: UNK
     Route: 048
  7. AMLOR [Concomitant]
     Dosage: UNK
     Route: 048

REACTIONS (2)
  - Drug interaction [Recovered/Resolved]
  - Hyperkalaemia [Recovered/Resolved]
